FAERS Safety Report 5243623-2 (Version None)
Quarter: 2007Q1

REPORT INFORMATION
  Report Type: 
  Country: None (occurrence: None)
  Receive Date: 20070222
  Receipt Date: 20070216
  Transmission Date: 20070707
  Serious: Yes (Death)
  Sender: FDA-Public Use
  Company Number: 2007AP01026

PATIENT
  Age: 47 Year
  Sex: Male

DRUGS (4)
  1. OMEPRAL [Suspect]
     Indication: REFLUX OESOPHAGITIS
     Route: 048
     Dates: start: 20061102
  2. URSO [Concomitant]
     Route: 048
     Dates: start: 20020101
  3. GLYCYRON [Concomitant]
     Route: 048
  4. LIVACT [Concomitant]
     Route: 048

REACTIONS (1)
  - ROAD TRAFFIC ACCIDENT [None]
